FAERS Safety Report 7138899-0 (Version None)
Quarter: 2010Q4

REPORT INFORMATION
  Report Type: 
  Country: None (occurrence: None)
  Receive Date: 20101206
  Receipt Date: 20100824
  Transmission Date: 20110411
  Serious: Yes (Other)
  Sender: FDA-Public Use
  Company Number: US-ABBOTT-10P-163-0666042-00

PATIENT
  Age: 5 Year
  Sex: Female
  Weight: 27.24 kg

DRUGS (1)
  1. OMNICEF [Suspect]
     Indication: EAR INFECTION
     Dosage: UNKNOWN DOSE
     Route: 048
     Dates: start: 20100819, end: 20100823

REACTIONS (1)
  - PNEUMONIA [None]
